FAERS Safety Report 4437407-2 (Version None)
Quarter: 2004Q3

REPORT INFORMATION
  Report Type: 
  Country: None (occurrence: None)
  Receive Date: 20040830
  Receipt Date: 20040830
  Transmission Date: 20050211
  Serious: Yes (Hospitalization)
  Sender: FDA-Public Use
  Company Number: None

PATIENT
  Age: 62 Year
  Sex: Male
  Weight: 57.1532 kg

DRUGS (3)
  1. TAXOTERE [Suspect]
     Indication: OESOPHAGEAL CARCINOMA
     Dosage: SEE IMAGE
     Route: 042
     Dates: start: 20040629, end: 20040706
  2. XELODA [Suspect]
     Indication: OESOPHAGEAL CARCINOMA
     Dosage: 3500 MG DAY 1-10 ORAL
     Route: 048
     Dates: start: 20040629, end: 20040709
  3. CARBOPLATIN [Suspect]
     Dosage: 200 MG

REACTIONS (8)
  - ASTHENIA [None]
  - CANDIDIASIS [None]
  - FATIGUE [None]
  - HERPES SIMPLEX [None]
  - MUCOSAL INFLAMMATION [None]
  - NEUTROPENIA [None]
  - POST PROCEDURAL DIARRHOEA [None]
  - PYREXIA [None]
